FAERS Safety Report 8442413 (Version 4)
Quarter: 2012Q4

REPORT INFORMATION
  Report Type: 
  Country: US (occurrence: US)
  Receive Date: 20120306
  Receipt Date: 20120912
  Transmission Date: 20130627
  Serious: Yes (Hospitalization, Other)
  Sender: FDA-Public Use
  Company Number: US-BAYER-2012-019497

PATIENT
  Age: 27 Year
  Sex: Female
  Weight: 87.08 kg

DRUGS (8)
  1. YAZ [Suspect]
     Dosage: UNK
     Dates: start: 20070101, end: 200808
  2. YAZ [Suspect]
     Dosage: UNK
     Dates: start: 201004, end: 201110
  3. BEYAZ [Suspect]
  4. FLUCONAZOLE [Concomitant]
     Dosage: 150 mg, UNK
     Dates: start: 20110708
  5. FLUCONAZOLE [Concomitant]
     Dosage: 150 mg, UNK
     Dates: start: 20110927
  6. NAPROXEN [Concomitant]
     Dosage: 500 mg,tablet
     Dates: start: 20110928
  7. CYCLOBENZAPRINE [Concomitant]
     Dosage: 5 mg, TID
     Route: 048
     Dates: start: 20111005
  8. KETOROLAC [Concomitant]
     Dosage: 10 mg,tablet
     Dates: start: 20111005

REACTIONS (7)
  - Pulmonary embolism [None]
  - Pain [None]
  - Chest pain [None]
  - Dyspnoea [None]
  - Palpitations [None]
  - Neuralgia [None]
  - Pneumonitis [None]
